FAERS Safety Report 9682603 (Version 2)
Quarter: 2014Q1

REPORT INFORMATION
  Report Type: Spontaneous
  Country: GB (occurrence: GB)
  Receive Date: 20131017
  Receipt Date: 20140120
  Transmission Date: 20141002
  Serious: Yes (Other)
  Sender: FDA-Public Use
  Company Number: GB-DRREDDYS-GER/UKI/13/0034870

PATIENT
  Age: 78 Year
  Sex: Male

DRUGS (5)
  1. TERBINAFINE [Suspect]
     Indication: TINEA INFECTION
     Route: 048
     Dates: start: 20130808, end: 20130828
  2. TERBINAFINE [Suspect]
     Dates: start: 20130914, end: 20130916
  3. BALNEUM [Concomitant]
     Indication: PRODUCT USED FOR UNKNOWN INDICATION
  4. EUMOVATE [Concomitant]
     Indication: PRODUCT USED FOR UNKNOWN INDICATION
  5. PREDNISOLONE [Concomitant]
     Indication: PRODUCT USED FOR UNKNOWN INDICATION

REACTIONS (5)
  - Stevens-Johnson syndrome [Unknown]
  - Glossodynia [Unknown]
  - Eczema [Recovered/Resolved]
  - Insomnia [Not Recovered/Not Resolved]
  - Stress [Unknown]
